FAERS Safety Report 8430456 (Version 2)
Quarter: 2012Q4

REPORT INFORMATION
  Report Type: Report from Study
  Country: JP (occurrence: JP)
  Receive Date: 20120228
  Receipt Date: 20121130
  Transmission Date: 20130627
  Serious: Yes (Other)
  Sender: FDA-Public Use
  Company Number: JP-CELGENEUS-087-21660-12022723

PATIENT
  Age: 45 Year
  Sex: Female
  Weight: 74 kg

DRUGS (10)
  1. ABRAXANE [Suspect]
     Indication: BREAST CANCER METASTATIC
     Dosage: 268 Milligram
     Route: 041
     Dates: start: 20100817
  2. ABRAXANE [Suspect]
     Dosage: 268 Milligram
     Route: 041
     Dates: start: 20101012
  3. ABRAXANE [Suspect]
     Dosage: 268 Milligram
     Route: 041
     Dates: start: 20101116
  4. ABRAXANE [Suspect]
     Dosage: 268 Milligram
     Route: 041
     Dates: start: 20110726
  5. ABRAXANE [Suspect]
     Dosage: 268 Milligram
     Route: 041
     Dates: start: 20110830
  6. ABRAXANE [Suspect]
     Dosage: 268 Milligram
     Route: 041
     Dates: end: 20120207
  7. LOXOPROFEN [Concomitant]
     Indication: PAINFUL L ARM
     Route: 048
     Dates: start: 20100803
  8. REBAMIPIDE [Concomitant]
     Indication: GASTRITIS PROPHYLAXIS
     Route: 048
     Dates: start: 20100803
  9. ZOMETA [Concomitant]
     Indication: METASTASES TO BONE
     Dosage: 4 Milligram
     Route: 065
     Dates: start: 20100813
  10. KARY UNI [Concomitant]
     Indication: CATARACT
     Route: 047
     Dates: start: 20101109

REACTIONS (1)
  - Macular oedema [Recovering/Resolving]
